FAERS Safety Report 23883969 (Version 3)
Quarter: 2024Q2

REPORT INFORMATION
  Report Type: Spontaneous
  Country: US (occurrence: US)
  Receive Date: 20240522
  Receipt Date: 20240612
  Transmission Date: 20240715
  Serious: Yes (Other)
  Sender: FDA-Public Use
  Company Number: US-BoehringerIngelheim-2024-BI-029199

PATIENT
  Age: 87 Year
  Sex: Female
  Weight: 72 kg

DRUGS (2)
  1. SPEVIGO [Suspect]
     Active Substance: SPESOLIMAB-SBZO
     Indication: Generalised pustular psoriasis
     Route: 042
  2. SPEVIGO [Suspect]
     Active Substance: SPESOLIMAB-SBZO
     Dosage: 900 MG
     Route: 042
     Dates: start: 20240513, end: 20240513

REACTIONS (1)
  - Generalised pustular psoriasis [Recovering/Resolving]

NARRATIVE: CASE EVENT DATE: 20240501
